FAERS Safety Report 7250630-7 (Version None)
Quarter: 2011Q1

REPORT INFORMATION
  Report Type: 
  Country: None (occurrence: None)
  Receive Date: 20110128
  Receipt Date: 20101228
  Transmission Date: 20110831
  Serious: Yes (Other)
  Sender: FDA-Public Use
  Company Number: DE-ASTRAZENECA-2011SE01342

PATIENT
  Age: 38 Year
  Sex: Female
  Weight: 62 kg

DRUGS (2)
  1. ANTRA [Suspect]
     Route: 048
  2. CONTRACEPTIVES NOS [Concomitant]

REACTIONS (2)
  - NAUSEA [None]
  - CARDIOVASCULAR DISORDER [None]
